FAERS Safety Report 4342278-9 (Version None)
Quarter: 2004Q2

REPORT INFORMATION
  Report Type: 
  Country: None (occurrence: None)
  Receive Date: 20040415
  Receipt Date: 20040405
  Transmission Date: 20050107
  Serious: No
  Sender: FDA-Public Use
  Company Number: 2004UW06817

PATIENT
  Age: 42 Year
  Sex: Female
  Weight: 54.4316 kg

DRUGS (1)
  1. SEROQUEL [Suspect]
     Indication: SCHIZOPHRENIA
     Dosage: 25 MG DAILY PO
     Route: 048

REACTIONS (12)
  - AFFECTIVE DISORDER [None]
  - ARRHYTHMIA [None]
  - BRONCHITIS ACUTE [None]
  - C-REACTIVE PROTEIN INCREASED [None]
  - CHEST PAIN [None]
  - DYSPNOEA EXERTIONAL [None]
  - HERPES ZOSTER [None]
  - LUNG NEOPLASM MALIGNANT [None]
  - MUSCLE DISORDER [None]
  - NEUROLEPTIC MALIGNANT SYNDROME [None]
  - PNEUMONIA [None]
  - TACHYCARDIA [None]
